FAERS Safety Report 5913768-X (Version None)
Quarter: 2008Q4

REPORT INFORMATION
  Report Type: 
  Country: None (occurrence: None)
  Receive Date: 20081007
  Receipt Date: 20080922
  Transmission Date: 20090506
  Serious: Yes (Hospitalization)
  Sender: FDA-Public Use
  Company Number: 100#08#2008-04895

PATIENT
  Age: 56 Year
  Sex: Female

DRUGS (3)
  1. TAMOXIFEN CITRATE [Suspect]
     Indication: BREAST CANCER
     Dosage: 20 MG DAILY
     Dates: start: 20070101
  2. ACITRETIN [Suspect]
     Indication: KERATOSIS FOLLICULAR
     Dosage: 50 MG DAILY
  3. TRIAMCINOLONE [Concomitant]

REACTIONS (9)
  - CHEST DISCOMFORT [None]
  - DIZZINESS [None]
  - DRUG INTERACTION [None]
  - DRUG LEVEL DECREASED [None]
  - ELECTROCARDIOGRAM QT PROLONGED [None]
  - FATIGUE [None]
  - HYPOTHYROIDISM [None]
  - ORTHOSTATIC HYPERTENSION [None]
  - SINUS BRADYCARDIA [None]
